FAERS Safety Report 8738198 (Version 2)
Quarter: 2013Q4

REPORT INFORMATION
  Report Type: Spontaneous
  Country: GB (occurrence: GB)
  Receive Date: 20120823
  Receipt Date: 20131031
  Transmission Date: 20140711
  Serious: Yes (Hospitalization, Other)
  Sender: FDA-Public Use
  Company Number: GB-009507513-1208GBR006099

PATIENT
  Age: 19 Year
  Sex: Female

DRUGS (7)
  1. DIPROSONE [Suspect]
     Indication: MATERNAL THERAPY TO ENHANCE FOETAL LUNG MATURITY
     Route: 065
  2. ASPIRIN [Suspect]
     Indication: PRODUCT USED FOR UNKNOWN INDICATION
     Dosage: 75 MG, UNK
     Route: 065
  3. ATORVASTATIN [Suspect]
     Indication: HYPERTRIGLYCERIDAEMIA
     Dosage: 40 MG, UNK
     Route: 065
  4. FENOFIBRATE [Suspect]
     Indication: HYPERTRIGLYCERIDAEMIA
     Dosage: 200 MG, UNK
     Route: 065
  5. FOLIC ACID [Suspect]
     Indication: PRODUCT USED FOR UNKNOWN INDICATION
     Dosage: 5 MG, UNK
     Route: 065
  6. INSULIN [Suspect]
     Indication: DIABETES MELLITUS
     Route: 058
  7. INSULIN [Suspect]
     Dosage: UNK
     Route: 040

REACTIONS (7)
  - Pancreatitis acute [Unknown]
  - Caesarean section [Unknown]
  - Exposure during pregnancy [Unknown]
  - Glycosylated haemoglobin increased [Unknown]
  - Hypertriglyceridaemia [Unknown]
  - Drug ineffective [Unknown]
  - Premature delivery [Unknown]
